FAERS Safety Report 18595460 (Version 1)
Quarter: 2020Q4

REPORT INFORMATION
  Report Type: Report from Study
  Country: US (occurrence: US)
  Receive Date: 20201209
  Receipt Date: 20201209
  Transmission Date: 20210114
  Serious: Yes (Hospitalization, Other)
  Sender: FDA-Public Use
  Company Number: US-BAYER-2020-265841

PATIENT
  Age: 68 Year
  Sex: Female

DRUGS (1)
  1. ADEMPAS [Suspect]
     Active Substance: RIOCIGUAT
     Dosage: UNK
     Dates: start: 20190705

REACTIONS (6)
  - Illness [Not Recovered/Not Resolved]
  - Surgery [None]
  - Rehabilitation therapy [None]
  - Memory impairment [None]
  - Unevaluable event [None]
  - Hospitalisation [None]

NARRATIVE: CASE EVENT DATE: 2019
